FAERS Safety Report 7761795-2 (Version None)
Quarter: 2011Q3

REPORT INFORMATION
  Report Type: 
  Country: None (occurrence: None)
  Receive Date: 20110920
  Receipt Date: 20110915
  Transmission Date: 20111222
  Serious: Yes (Hospitalization)
  Sender: FDA-Public Use
  Company Number: PHHY2011RU82407

PATIENT
  Age: 42 Year
  Sex: Female

DRUGS (3)
  1. BETASERON [Concomitant]
     Dosage: UNK UKN, UNK
  2. EXTAVIA [Suspect]
     Dosage: UNK UKN, UNK
  3. RONBETAL [Concomitant]
     Dosage: UNK UKN, UNK

REACTIONS (4)
  - SENSORY DISTURBANCE [None]
  - PNEUMONIA [None]
  - CONSTIPATION [None]
  - MICTURITION URGENCY [None]
